FAERS Safety Report 7824673-6 (Version None)
Quarter: 2011Q4

REPORT INFORMATION
  Report Type: 
  Country: None (occurrence: None)
  Receive Date: 20111019
  Receipt Date: 20111006
  Transmission Date: 20120403
  Serious: Yes (Hospitalization)
  Sender: FDA-Public Use
  Company Number: PHHO2011DE05597

PATIENT
  Sex: Male
  Weight: 83 kg

DRUGS (3)
  1. PREDNISOLONE [Suspect]
     Indication: RENAL TRANSPLANT
     Dosage: 20 MG, SID
     Route: 048
     Dates: start: 20090529
  2. MYCOPHENOLATE MOFETIL [Suspect]
     Indication: LUNG TRANSPLANT
     Dosage: 250 MG, BID
     Route: 048
     Dates: start: 20090530
  3. NEORAL [Suspect]
     Indication: RENAL TRANSPLANT
     Dosage: 80 MG, SID
     Route: 048

REACTIONS (3)
  - RESPIRATORY SYNCYTIAL VIRUS INFECTION [None]
  - PNEUMOCOCCAL INFECTION [None]
  - PNEUMOTHORAX [None]
